APPROVED DRUG PRODUCT: TENOFOVIR ALAFENAMIDE
Active Ingredient: TENOFOVIR ALAFENAMIDE FUMARATE
Strength: EQ 25MG BASE
Dosage Form/Route: TABLET;ORAL
Application: A214226 | Product #001 | TE Code: AB
Applicant: LUPIN LTD
Approved: Mar 30, 2023 | RLD: No | RS: No | Type: RX